FAERS Safety Report 9185764 (Version 1)
Quarter: 2013Q1

REPORT INFORMATION
  Report Type: Spontaneous
  Country: US (occurrence: None)
  Receive Date: 20120628
  Receipt Date: 20120628
  Transmission Date: 20140127
  Serious: Yes (Hospitalization)
  Sender: FDA-Public Use
  Company Number: PHEH2011US02674

PATIENT
  Age: 70 Year
  Sex: Female

DRUGS (5)
  1. RECLAST [Suspect]
     Dates: start: 20110617
  2. SYNTHROID (LEVOTHYROXINE SODIUM) [Concomitant]
  3. VITAMIN D (ERGOCALCIFEROL) [Concomitant]
  4. VITAMIN B12 (CYCANOCOBALMIN) [Concomitant]
  5. CALCIUM (CALCIUM) [Concomitant]

REACTIONS (1)
  - Pain in jaw [None]
